FAERS Safety Report 11376495 (Version 2)
Quarter: 2015Q4

REPORT INFORMATION
  Report Type: Spontaneous
  Country: NL (occurrence: NL)
  Receive Date: 20150813
  Receipt Date: 20151022
  Transmission Date: 20160304
  Serious: Yes (Other)
  Sender: FDA-Public Use
  Company Number: NL-OTSUKA-US-2015-11509

PATIENT

DRUGS (1)
  1. ABILIFY MAINTENA [Suspect]
     Active Substance: ARIPIPRAZOLE
     Indication: SCHIZOPHRENIA, PARANOID TYPE
     Dosage: 400 MG, QM
     Route: 030
     Dates: start: 20150203

REACTIONS (5)
  - Post-traumatic stress disorder [Not Recovered/Not Resolved]
  - Suspiciousness [Recovering/Resolving]
  - Panic attack [Recovering/Resolving]
  - Irritability [Recovering/Resolving]
  - Anxiety [Not Recovered/Not Resolved]

NARRATIVE: CASE EVENT DATE: 201501
